FAERS Safety Report 9596341 (Version 1)
Quarter: 2013Q4

REPORT INFORMATION
  Report Type: Spontaneous
  Country: US (occurrence: US)
  Receive Date: 20131004
  Receipt Date: 20131004
  Transmission Date: 20140711
  Serious: No
  Sender: FDA-Public Use
  Company Number: US-VIIV HEALTHCARE LIMITED-A0989101A

PATIENT
  Age: 43 Year
  Sex: Male

DRUGS (1)
  1. SELZENTRY [Suspect]
     Indication: PRODUCT USED FOR UNKNOWN INDICATION
     Dosage: 300MG UNKNOWN
     Route: 065
     Dates: start: 20120223

REACTIONS (1)
  - Malaise [Unknown]
